FAERS Safety Report 17884973 (Version 3)
Quarter: 2020Q3

REPORT INFORMATION
  Report Type: Report from Study
  Country: CA (occurrence: CA)
  Receive Date: 20200611
  Receipt Date: 20200708
  Transmission Date: 20201103
  Serious: Yes (Hospitalization)
  Sender: FDA-Public Use
  Company Number: CA-SA-2020SA141995

PATIENT

DRUGS (66)
  1. VERSED [Concomitant]
     Active Substance: MIDAZOLAM HYDROCHLORIDE
     Indication: PRE-EXISTING DISEASE
     Dosage: 100 MG, CONT
     Route: 042
     Dates: start: 20200513, end: 20200514
  2. LASIX [Concomitant]
     Active Substance: FUROSEMIDE
     Dosage: 20 MG, Q8H
     Route: 042
     Dates: start: 20200521, end: 20200525
  3. K?DUR [Concomitant]
     Active Substance: POTASSIUM CHLORIDE
     Dosage: 40 MEQ, Q6H
     Route: 048
     Dates: start: 20200515, end: 20200515
  4. HEPARINE [HEPARIN] [Concomitant]
     Active Substance: HEPARIN SODIUM
     Indication: PRE-EXISTING DISEASE
     Dosage: 25000 IU, CONT
     Route: 042
     Dates: start: 20200512, end: 20200527
  5. SEROQUEL [Concomitant]
     Active Substance: QUETIAPINE FUMARATE
     Dosage: 100 MG, HS
     Route: 048
     Dates: start: 20200523, end: 20200525
  6. WELLBUTRIN [Concomitant]
     Active Substance: BUPROPION HYDROCHLORIDE
     Indication: PRE-EXISTING DISEASE
     Dosage: 300 UG, QD
     Route: 048
     Dates: start: 20200510, end: 20200512
  7. KCL [Concomitant]
     Active Substance: POTASSIUM CHLORIDE
     Indication: PRE-EXISTING DISEASE
     Dosage: 40 MEQ, QD
     Route: 048
     Dates: start: 20200513, end: 20200513
  8. KCL [Concomitant]
     Active Substance: POTASSIUM CHLORIDE
     Dosage: 40 MEQ, TID
     Route: 048
     Dates: start: 20200516, end: 20200518
  9. FENTANYL. [Concomitant]
     Active Substance: FENTANYL
     Indication: PRE-EXISTING DISEASE
     Dosage: 3125 UG, CONT
     Route: 042
     Dates: start: 20200513, end: 20200517
  10. LASIX [Concomitant]
     Active Substance: FUROSEMIDE
     Dosage: 40 MG, Q12H
     Route: 042
     Dates: start: 20200513, end: 20200514
  11. LASIX [Concomitant]
     Active Substance: FUROSEMIDE
     Dosage: 40 MG, 1X
     Route: 042
     Dates: start: 20200514, end: 20200514
  12. LASIX [Concomitant]
     Active Substance: FUROSEMIDE
     Dosage: 20 MG, Q8H
     Route: 042
     Dates: start: 20200516, end: 20200518
  13. CELEXA [CELECOXIB] [Concomitant]
     Active Substance: CELECOXIB
     Indication: PRE-EXISTING DISEASE
     Dosage: 20 MG, QD
     Route: 048
     Dates: start: 20200510
  14. ZAROXOLYN [Concomitant]
     Active Substance: METOLAZONE
     Indication: PRE-EXISTING DISEASE
     Dosage: 2.5 MG, QD
     Route: 048
     Dates: start: 20200513, end: 20200515
  15. K?DUR [Concomitant]
     Active Substance: POTASSIUM CHLORIDE
     Dosage: 40 MEQ, BID
     Route: 048
     Dates: start: 20200518, end: 20200518
  16. K?DUR [Concomitant]
     Active Substance: POTASSIUM CHLORIDE
     Dosage: 40 MEQ, TID
     Route: 048
     Dates: start: 20200518, end: 20200524
  17. NEXIUM I.V. [Concomitant]
     Active Substance: ESOMEPRAZOLE SODIUM
     Indication: PROPHYLAXIS
     Dosage: 40 MG, QD
     Route: 048
     Dates: start: 20200524, end: 20200528
  18. ZOFRAN [Concomitant]
     Active Substance: ONDANSETRON HYDROCHLORIDE
     Indication: PRE-EXISTING DISEASE
     Dosage: 4 MG, Q8H
     Route: 042
     Dates: start: 20200517, end: 20200525
  19. HALDOL [Concomitant]
     Active Substance: HALOPERIDOL
     Dosage: 1 MG, PRN
     Route: 042
     Dates: start: 20200520, end: 20200523
  20. NYSTATIN. [Concomitant]
     Active Substance: NYSTATIN
     Dosage: 500000 U, Q6H
     Route: 048
     Dates: start: 20200521, end: 20200526
  21. SEROQUEL [Concomitant]
     Active Substance: QUETIAPINE FUMARATE
     Indication: DEPRESSION
     Dosage: 50 MG, QD
     Route: 048
     Dates: start: 20200522, end: 20200523
  22. SARILUMAB [Suspect]
     Active Substance: SARILUMAB
     Indication: COVID-19
     Dosage: 1 BAG AT INFUSION RATE OF 135 ML/H, 1X
     Route: 042
     Dates: start: 20200512, end: 20200512
  23. AZITHROMYCINE [Concomitant]
     Active Substance: AZITHROMYCIN
     Indication: PRE-EXISTING DISEASE
     Dosage: 500 MG, QD
     Route: 042
     Dates: start: 20200510, end: 20200513
  24. WELLBUTRIN [Concomitant]
     Active Substance: BUPROPION HYDROCHLORIDE
     Dosage: 150 MG, BID
     Route: 048
     Dates: start: 20200512
  25. LAX?A?DAY [Concomitant]
     Dosage: 17 G, BID
     Route: 048
     Dates: start: 20200513, end: 20200523
  26. FRAGMIN [Concomitant]
     Active Substance: DALTEPARIN SODIUM
     Indication: PRE-EXISTING DISEASE
     Dosage: 7500 U, QD
     Route: 058
     Dates: start: 20200511, end: 20200512
  27. HYDROCORTISONE. [Concomitant]
     Active Substance: HYDROCORTISONE
     Indication: PRE-EXISTING DISEASE
     Dosage: 50 MG, Q6H
     Route: 042
     Dates: start: 20200511, end: 20200518
  28. KCL [Concomitant]
     Active Substance: POTASSIUM CHLORIDE
     Dosage: 60 MEQ, 1X
     Route: 042
     Dates: start: 20200515, end: 20200515
  29. LEVOPHED [Concomitant]
     Active Substance: NOREPINEPHRINE BITARTRATE
     Indication: PRE-EXISTING DISEASE
     Dosage: 4 MG, CONT
     Route: 042
     Dates: start: 20200512, end: 20200526
  30. LASIX [Concomitant]
     Active Substance: FUROSEMIDE
     Dosage: 60 MG, Q8H
     Route: 042
     Dates: start: 20200514, end: 20200515
  31. K?DUR [Concomitant]
     Active Substance: POTASSIUM CHLORIDE
     Indication: PRE-EXISTING DISEASE
     Dosage: 40 MEQ, 1X
     Route: 042
     Dates: start: 20200514, end: 20200514
  32. CALCIUM CARBONATE. [Concomitant]
     Active Substance: CALCIUM CARBONATE
     Indication: PRE-EXISTING DISEASE
     Dosage: 500 MG, BID
     Route: 048
     Dates: start: 20200516
  33. MAXERAN [Concomitant]
     Active Substance: METOCLOPRAMIDE HYDROCHLORIDE
     Indication: PRE-EXISTING DISEASE
     Dosage: 10 MG, TID
     Route: 042
     Dates: start: 20200517, end: 20200521
  34. HUMULIN R [Concomitant]
     Active Substance: INSULIN HUMAN
     Indication: PRE-EXISTING DISEASE
     Dosage: 25 IU, CONT
     Route: 042
     Dates: start: 20200517, end: 20200526
  35. PRECEDEX [Concomitant]
     Active Substance: DEXMEDETOMIDINE HYDROCHLORIDE
     Indication: PRE-EXISTING DISEASE
     Dosage: 400 UG, CONT
     Route: 042
     Dates: start: 20200519, end: 20200528
  36. PIPTAZO [Concomitant]
     Indication: PRE-EXISTING DISEASE
     Dosage: 3.375 G, Q6H
     Route: 042
     Dates: start: 20200511, end: 20200515
  37. VENTOLINE [SALBUTAMOL] [Concomitant]
     Active Substance: ALBUTEROL SULFATE
     Indication: PRE-EXISTING DISEASE
     Dosage: 800 UG, Q6H
     Route: 050
     Dates: start: 20200512, end: 20200527
  38. LASIX [Concomitant]
     Active Substance: FUROSEMIDE
     Dosage: 20 MG, BID
     Route: 042
     Dates: start: 20200520, end: 20200521
  39. NEXIUM I.V. [Concomitant]
     Active Substance: ESOMEPRAZOLE SODIUM
     Indication: PRE-EXISTING DISEASE
     Dosage: 40 MG, QD
     Route: 048
     Dates: start: 20200512, end: 20200523
  40. MULTIVITAMINS [VITAMINS NOS] [Concomitant]
     Active Substance: VITAMINS
     Indication: PRE-EXISTING DISEASE
     Dosage: 1 DF, QD
     Route: 048
     Dates: start: 20200515
  41. HALDOL [Concomitant]
     Active Substance: HALOPERIDOL
     Indication: PRE-EXISTING DISEASE
     Dosage: 1 MG, Q4H
     Route: 042
     Dates: start: 20200518, end: 20200520
  42. HALDOL [Concomitant]
     Active Substance: HALOPERIDOL
     Dosage: 2 MG, PRN
     Route: 042
     Dates: start: 20200526, end: 20200528
  43. CANESTEN [Concomitant]
     Active Substance: CLOTRIMAZOLE
     Indication: PRE-EXISTING DISEASE
     Dosage: DOSE: 1 APPLICATION UNIT, BID
     Route: 061
     Dates: start: 20200522, end: 20200529
  44. TYLENOL [Concomitant]
     Active Substance: ACETAMINOPHEN
     Indication: PRE-EXISTING DISEASE
     Dosage: 975 MG, Q6H
     Route: 048
     Dates: start: 20200510, end: 20200512
  45. TYLENOL [Concomitant]
     Active Substance: ACETAMINOPHEN
     Dosage: 650 MG, Q6H
     Route: 048
     Dates: start: 20200512
  46. LAX?A?DAY [Concomitant]
     Indication: PRE-EXISTING DISEASE
     Dosage: 17 G, QD
     Route: 048
     Dates: start: 20200511, end: 20200513
  47. RITONAVIR. [Concomitant]
     Active Substance: RITONAVIR
     Indication: PRE-EXISTING DISEASE
     Dosage: UNK UNK, BID
     Route: 048
     Dates: start: 20200511, end: 20200525
  48. KCL [Concomitant]
     Active Substance: POTASSIUM CHLORIDE
     Dosage: 40 MEQ, Q8H
     Route: 048
     Dates: start: 20200514, end: 20200515
  49. KCL [Concomitant]
     Active Substance: POTASSIUM CHLORIDE
     Dosage: 40 MEQ, Q8H
     Route: 048
     Dates: start: 20200515, end: 20200515
  50. LASIX [Concomitant]
     Active Substance: FUROSEMIDE
     Indication: PRE-EXISTING DISEASE
     Dosage: 10 MG, Q8H
     Route: 042
     Dates: start: 20200513, end: 20200513
  51. DILAUDID [Concomitant]
     Active Substance: HYDROMORPHONE HYDROCHLORIDE
     Indication: PRE-EXISTING DISEASE
     Dosage: UNK UNK, PRN
     Route: 058
     Dates: start: 20200517, end: 20200525
  52. SEROQUEL [Concomitant]
     Active Substance: QUETIAPINE FUMARATE
     Dosage: 100 MG, BID
     Route: 048
     Dates: start: 20200525, end: 20200528
  53. FLOVENT [Concomitant]
     Active Substance: FLUTICASONE PROPIONATE
     Indication: PRE-EXISTING DISEASE
     Dosage: 250 UG, BID
     Route: 055
     Dates: start: 20200510, end: 20200512
  54. VENTOLIN [Concomitant]
     Active Substance: ALBUTEROL SULFATE
     Indication: PRE-EXISTING DISEASE
     Dosage: 100 UG, PRN
     Route: 050
     Dates: start: 20200510, end: 20200512
  55. VERSED [Concomitant]
     Active Substance: MIDAZOLAM HYDROCHLORIDE
     Dosage: 5 MG, 1X
     Route: 042
     Dates: start: 20200514, end: 20200515
  56. LASIX [Concomitant]
     Active Substance: FUROSEMIDE
     Dosage: 40 MG, Q8H
     Route: 042
     Dates: start: 20200515, end: 20200516
  57. K?DUR [Concomitant]
     Active Substance: POTASSIUM CHLORIDE
     Dosage: 60 MEQ, Q6H
     Route: 048
     Dates: start: 20200515, end: 20200516
  58. HALDOL [Concomitant]
     Active Substance: HALOPERIDOL
     Dosage: 1 MG, Q4H
     Route: 042
     Dates: start: 20200523, end: 20200524
  59. HALDOL [Concomitant]
     Active Substance: HALOPERIDOL
     Dosage: 1 MG, PRN
     Route: 042
     Dates: start: 20200526, end: 20200528
  60. VENTOLIN [Concomitant]
     Active Substance: ALBUTEROL SULFATE
     Dosage: 800 MG, Q6H
     Route: 050
     Dates: start: 20200512, end: 20200527
  61. TRAZODONE [Concomitant]
     Active Substance: TRAZODONE HYDROCHLORIDE
     Indication: PRE-EXISTING DISEASE
     Dosage: 100 MG, QD (EVERY EVENING)
     Route: 048
     Dates: start: 20200511, end: 20200512
  62. LOPINAVIR [Concomitant]
     Active Substance: LOPINAVIR
     Indication: PRE-EXISTING DISEASE
     Dosage: UNK UNK, BID
     Route: 048
     Dates: start: 20200511, end: 20200525
  63. ZAROXOLYN [Concomitant]
     Active Substance: METOLAZONE
     Dosage: 5 MG, QD
     Route: 048
     Dates: start: 20200515, end: 20200518
  64. PROPOFOL. [Concomitant]
     Active Substance: PROPOFOL
     Indication: PRE-EXISTING DISEASE
     Dosage: 10 MG, CONT
     Route: 042
     Dates: start: 20200512, end: 20200515
  65. PROPOFOL. [Concomitant]
     Active Substance: PROPOFOL
     Dosage: 10 MG, CONT
     Route: 042
     Dates: start: 20200515, end: 20200526
  66. K?DUR [Concomitant]
     Active Substance: POTASSIUM CHLORIDE
     Dosage: 20 MEQ, TID
     Route: 048
     Dates: start: 20200524, end: 20200525

REACTIONS (1)
  - Systemic candida [Recovered/Resolved]

NARRATIVE: CASE EVENT DATE: 20200526
